FAERS Safety Report 8453332-4 (Version None)
Quarter: 2012Q2

REPORT INFORMATION
  Report Type: 
  Country: None (occurrence: None)
  Receive Date: 20120620
  Receipt Date: 20120513
  Transmission Date: 20120825
  Serious: No
  Sender: FDA-Public Use
  Company Number: US-VERTEX PHARMACEUTICALS INC.-AE-2012-007060

PATIENT
  Sex: Female
  Weight: 99.88 kg

DRUGS (7)
  1. RIBAVIRIN [Concomitant]
     Indication: HEPATITIS C
     Route: 048
     Dates: start: 20120324
  2. EQUATE HEART BURN PILL [Concomitant]
     Indication: DYSPEPSIA
  3. ASCORBIC ACID [Concomitant]
  4. INCIVEK [Suspect]
     Indication: HEPATITIS C
     Route: 048
     Dates: start: 20120324
  5. EQUATE ALLERGY RELIEF PILL [Concomitant]
     Indication: HYPERSENSITIVITY
  6. VITAMIN E [Concomitant]
  7. PEGASYS [Concomitant]
     Indication: HEPATITIS C
     Route: 058
     Dates: start: 20120324

REACTIONS (5)
  - NAUSEA [None]
  - DRUG DOSE OMISSION [None]
  - FATIGUE [None]
  - PRURITUS [None]
  - FUNGAL INFECTION [None]
